FAERS Safety Report 25793907 (Version 4)
Quarter: 2025Q4

REPORT INFORMATION
  Report Type: Report from Study
  Country: AR (occurrence: AR)
  Receive Date: 20250912
  Receipt Date: 20251118
  Transmission Date: 20260118
  Serious: Yes (Hospitalization, Other)
  Sender: TAKEDA
  Company Number: AR-TAKEDA-2025TUS070646

PATIENT
  Age: 5 Year
  Sex: Male

DRUGS (4)
  1. TEDUGLUTIDE [Suspect]
     Active Substance: TEDUGLUTIDE
     Indication: Product used for unknown indication
     Dosage: UNK UNK, QD
  2. TEDUGLUTIDE [Suspect]
     Active Substance: TEDUGLUTIDE
  3. TEDUGLUTIDE [Suspect]
     Active Substance: TEDUGLUTIDE
  4. TEDUGLUTIDE [Suspect]
     Active Substance: TEDUGLUTIDE

REACTIONS (9)
  - Seizure [Recovering/Resolving]
  - Diarrhoea [Recovering/Resolving]
  - Product dose omission issue [Unknown]
  - Product supply issue [Unknown]
  - Treatment noncompliance [Unknown]
  - Frequent bowel movements [Recovering/Resolving]
  - Weight decreased [Unknown]
  - Product use issue [Unknown]
  - Constipation [Recovering/Resolving]

NARRATIVE: CASE EVENT DATE: 20250601
